FAERS Safety Report 9605035 (Version 2)
Quarter: 2013Q4

REPORT INFORMATION
  Report Type: Spontaneous
  Country: DE (occurrence: DE)
  Receive Date: 20131008
  Receipt Date: 20131008
  Transmission Date: 20140711
  Serious: Yes (Other)
  Sender: FDA-Public Use
  Company Number: DE-JNJFOC-20130807912

PATIENT
  Age: 63 Year
  Sex: Male
  Weight: 89 kg

DRUGS (2)
  1. ZYTIGA [Suspect]
     Indication: PROSTATE CANCER METASTATIC
     Route: 048
     Dates: start: 20130716, end: 20130808
  2. PREDNISOLONE [Concomitant]
     Indication: PROSTATE CANCER METASTATIC
     Route: 048
     Dates: start: 20130716

REACTIONS (4)
  - Hepatotoxicity [Recovering/Resolving]
  - Jaundice cholestatic [Unknown]
  - Cholelithiasis [Unknown]
  - Pancreatic carcinoma [Unknown]
